FAERS Safety Report 26088771 (Version 1)
Quarter: 2025Q4

REPORT INFORMATION
  Report Type: Report from Study
  Country: US (occurrence: US)
  Receive Date: 20251125
  Receipt Date: 20251125
  Transmission Date: 20260118
  Serious: No
  Sender: SANDOZ
  Company Number: US-SANDOZ-SDZ2025US088059

PATIENT
  Age: 12 Year
  Sex: Male

DRUGS (2)
  1. OMNITROPE [Suspect]
     Active Substance: SOMATROPIN
     Indication: Short stature
     Dosage: 1.5 MG, OTHER, 6 DAYS WEEKLY, OMNITROPE 10 MG / 1.5 ML SOLUTION FOR INJECTION
     Route: 058
     Dates: start: 20251119
  2. OMNITROPE [Suspect]
     Active Substance: SOMATROPIN
     Indication: Short stature
     Dosage: 1.5 MG, OTHER, 6 DAYS WEEKLY, OMNITROPE 10 MG / 1.5 ML SOLUTION FOR INJECTION
     Route: 058
     Dates: start: 20251119

REACTIONS (5)
  - Fear of injection [Unknown]
  - Injection site haemorrhage [Unknown]
  - Accidental exposure to product [Unknown]
  - Device mechanical issue [Unknown]
  - Device issue [Unknown]

NARRATIVE: CASE EVENT DATE: 20251101
